FAERS Safety Report 10496906 (Version 5)
Quarter: 2014Q4

REPORT INFORMATION
  Report Type: Report from Study
  Country: PL (occurrence: PL)
  Receive Date: 20141006
  Receipt Date: 20141217
  Transmission Date: 20150528
  Serious: Yes (Hospitalization, Other)
  Sender: FDA-Public Use
  Company Number: PL-BIOGENIDEC-2014BI100121

PATIENT
  Age: 6 Year
  Sex: Male
  Weight: 18 kg

DRUGS (7)
  1. ANTIHEMOPHILIC FACTOR (RECOMBINANT), FC FUSION PROTEIN [Suspect]
     Active Substance: (1-743)-(1638-2332)-BLOOD-COAGULATION FACTOR VIII (SYNTHETIC HUMAN) FUSION PROTEIN WITH IMMUNOGLOBULIN G1 (SYNTHETIC HUMAN FC DOMAIN FRAGMENT), (1444-6^),(1447-9^)-BIS(DISULFIDE) WITH IMMUNOGLOBULIN G1 (SYNTHETIC HUMAN FC DOMAIN FRAGMENT)
     Indication: FACTOR VIII DEFICIENCY
     Dates: start: 20130708
  2. ANTIHEMOPHILIC FACTOR (RECOMBINANT), FC FUSION PROTEIN [Suspect]
     Active Substance: (1-743)-(1638-2332)-BLOOD-COAGULATION FACTOR VIII (SYNTHETIC HUMAN) FUSION PROTEIN WITH IMMUNOGLOBULIN G1 (SYNTHETIC HUMAN FC DOMAIN FRAGMENT), (1444-6^),(1447-9^)-BIS(DISULFIDE) WITH IMMUNOGLOBULIN G1 (SYNTHETIC HUMAN FC DOMAIN FRAGMENT)
     Indication: FACTOR VIII DEFICIENCY
     Dates: start: 20140922, end: 20140922
  3. ACETAMINOPHEN. [Concomitant]
     Active Substance: ACETAMINOPHEN
     Indication: SKULL FRACTURE
  4. ELECTROLYTES [Concomitant]
     Active Substance: ELECTROLYTES NOS
     Indication: SURGERY
  5. ANTIHEMOPHILIC FACTOR (RECOMBINANT), FC FUSION PROTEIN [Suspect]
     Active Substance: (1-743)-(1638-2332)-BLOOD-COAGULATION FACTOR VIII (SYNTHETIC HUMAN) FUSION PROTEIN WITH IMMUNOGLOBULIN G1 (SYNTHETIC HUMAN FC DOMAIN FRAGMENT), (1444-6^),(1447-9^)-BIS(DISULFIDE) WITH IMMUNOGLOBULIN G1 (SYNTHETIC HUMAN FC DOMAIN FRAGMENT)
     Indication: FACTOR VIII DEFICIENCY
     Dates: start: 20130712
  6. ACETAMINOPHEN. [Concomitant]
     Active Substance: ACETAMINOPHEN
     Indication: HEADACHE
  7. ANTIHEMOPHILIC FACTOR (RECOMBINANT), FC FUSION PROTEIN [Suspect]
     Active Substance: (1-743)-(1638-2332)-BLOOD-COAGULATION FACTOR VIII (SYNTHETIC HUMAN) FUSION PROTEIN WITH IMMUNOGLOBULIN G1 (SYNTHETIC HUMAN FC DOMAIN FRAGMENT), (1444-6^),(1447-9^)-BIS(DISULFIDE) WITH IMMUNOGLOBULIN G1 (SYNTHETIC HUMAN FC DOMAIN FRAGMENT)
     Indication: FACTOR VIII DEFICIENCY
     Dates: start: 20140924, end: 20140924

REACTIONS (2)
  - Skull fracture [Recovered/Resolved]
  - Fall [Recovered/Resolved]

NARRATIVE: CASE EVENT DATE: 20140924
